FAERS Safety Report 9298984 (Version 1)
Quarter: 2013Q2

REPORT INFORMATION
  Report Type: Spontaneous
  Country: US (occurrence: US)
  Receive Date: 20130520
  Receipt Date: 20130520
  Transmission Date: 20140414
  Serious: No
  Sender: FDA-Public Use
  Company Number: US-SANOFI-AVENTIS-2013SA020606

PATIENT
  Age: 49 Year
  Sex: Male

DRUGS (1)
  1. APIDRA [Suspect]
     Indication: TYPE 1 DIABETES MELLITUS
     Dosage: DOSE 35-38 UNITS
     Route: 058
     Dates: start: 2012

REACTIONS (2)
  - Tooth infection [Unknown]
  - Blood glucose increased [Recovered/Resolved]
